FAERS Safety Report 6938578-6 (Version None)
Quarter: 2010Q3

REPORT INFORMATION
  Report Type: 
  Country: None (occurrence: None)
  Receive Date: 20100824
  Receipt Date: 20100817
  Transmission Date: 20110219
  Serious: Yes (Hospitalization)
  Sender: FDA-Public Use
  Company Number: SG-ASTRAZENECA-2010SE38571

PATIENT
  Age: 30 Year
  Sex: Male

DRUGS (3)
  1. QUETIAPINE [Suspect]
     Indication: SCHIZOPHRENIA
     Dosage: BEFORE WITHDRAWAL SYNDROME
     Route: 048
  2. QUETIAPINE [Suspect]
     Dosage: DURING THE WITHDRAWAL SYNDROME: NO MEDICATION WAS TAKEN
     Route: 048
  3. QUETIAPINE [Suspect]
     Dosage: AFTER THE WITHDRAWAL SYNDROM:E STARTING WITH 12.5 MG BID WITH GRADUAL INCREMENT TO 100 MG/DAY
     Route: 048

REACTIONS (3)
  - DRUG DOSE OMISSION [None]
  - DRUG WITHDRAWAL SYNDROME [None]
  - HYPERKINESIA [None]
